FAERS Safety Report 6022207-2 (Version None)
Quarter: 2008Q4

REPORT INFORMATION
  Report Type: 
  Country: None (occurrence: None)
  Receive Date: 20081229
  Receipt Date: 20081215
  Transmission Date: 20090506
  Serious: Yes (Other)
  Sender: FDA-Public Use
  Company Number: IT-GENENTECH-274496

PATIENT
  Sex: Male

DRUGS (3)
  1. AVASTIN [Suspect]
     Indication: PROSTATE CANCER
     Dosage: 10 MG/KG, Q21D
     Route: 042
  2. DOCETAXEL [Suspect]
     Indication: PROSTATE CANCER
     Dosage: 60 MG/M2, Q21D
     Route: 042
  3. DEXAMETHASONE [Concomitant]
     Indication: DRUG USE FOR UNKNOWN INDICATION
     Dosage: 8 MG, UNK

REACTIONS (1)
  - ANAEMIA [None]
